FAERS Safety Report 10704104 (Version 3)
Quarter: 2015Q1

REPORT INFORMATION
  Report Type: Spontaneous
  Country: IR (occurrence: IR)
  Receive Date: 20150112
  Receipt Date: 20150130
  Transmission Date: 20150721
  Serious: Yes (Death)
  Sender: FDA-Public Use
  Company Number: IR-CTI_01666_2015

PATIENT
  Age: 2 Day
  Sex: Female

DRUGS (4)
  1. RANITIDINE [Concomitant]
     Active Substance: RANITIDINE\RANITIDINE HYDROCHLORIDE
     Dosage: FREQUENCY UNKNOWN
     Route: 042
  2. AMPICILLIN [Concomitant]
     Active Substance: AMPICILLIN
     Dosage: FREQUENCY UNKNOWN
     Route: 042
  3. CUROSURF [Suspect]
     Active Substance: PORACTANT ALFA
     Indication: NEONATAL RESPIRATORY DISTRESS SYNDROME
     Dosage: ONCE
     Route: 007
  4. AMIKACIN [Concomitant]
     Active Substance: AMIKACIN
     Dosage: FREQUENCY UNKNOWN
     Route: 042

REACTIONS (1)
  - Haemoptysis [Fatal]
